FAERS Safety Report 21494649 (Version 3)
Quarter: 2023Q1

REPORT INFORMATION
  Report Type: Spontaneous
  Country: US (occurrence: US)
  Receive Date: 20221021
  Receipt Date: 20230215
  Transmission Date: 20230417
  Serious: No
  Sender: FDA-Public Use
  Company Number: TU22-1270065

PATIENT
  Sex: Female

DRUGS (1)
  1. LILETTA [Suspect]
     Active Substance: LEVONORGESTREL
     Indication: Product used for unknown indication
     Dosage: 52 MG, SINGLE
     Route: 015
     Dates: start: 20220914, end: 20221010

REACTIONS (2)
  - Device dislocation [Recovered/Resolved]
  - Device breakage [Unknown]
